FAERS Safety Report 17853329 (Version 3)
Quarter: 2020Q2

REPORT INFORMATION
  Report Type: Report from Study
  Country: None (occurrence: CA)
  Receive Date: 20200603
  Receipt Date: 20200624
  Transmission Date: 20200714
  Serious: Yes (Hospitalization, Other)
  Sender: FDA-Public Use
  Company Number: CA-ABBVIE-20K-028-3424095-00

PATIENT
  Sex: Female

DRUGS (1)
  1. HUMIRA [Suspect]
     Active Substance: ADALIMUMAB
     Indication: RHEUMATOID ARTHRITIS
     Route: 058
     Dates: start: 20191107, end: 20200604

REACTIONS (5)
  - Joint injury [Not Recovered/Not Resolved]
  - Obstruction [Unknown]
  - Gait disturbance [Not Recovered/Not Resolved]
  - Bone disorder [Not Recovered/Not Resolved]
  - Osteoporosis [Not Recovered/Not Resolved]
